FAERS Safety Report 25493336 (Version 2)
Quarter: 2025Q3

REPORT INFORMATION
  Report Type: Spontaneous
  Country: US (occurrence: US)
  Receive Date: 20250630
  Receipt Date: 20250711
  Transmission Date: 20251020
  Serious: No
  Sender: Alvotech
  Company Number: US-ALVOTECHPMS-2025-ALVOTECHPMS-004429

PATIENT
  Age: 68 Year
  Sex: Male
  Weight: 107.3 kg

DRUGS (1)
  1. SIMLANDI [Suspect]
     Active Substance: ADALIMUMAB-RYVK
     Indication: Ankylosing spondylitis
     Dosage: 40/0.4MG/ML
     Route: 058
     Dates: start: 20250507

REACTIONS (1)
  - Rash [Unknown]
